FAERS Safety Report 7229482-7 (Version None)
Quarter: 2011Q1

REPORT INFORMATION
  Report Type: 
  Country: None (occurrence: None)
  Receive Date: 20110117
  Receipt Date: 20100112
  Transmission Date: 20110831
  Serious: No
  Sender: FDA-Public Use
  Company Number: US-TYCO HEALTHCARE/MALLINCKRODT-T201000321

PATIENT

DRUGS (1)
  1. OPTIRAY 350 [Suspect]
     Indication: UROGRAM
     Dosage: 50 ML, SINGLE
     Route: 042
     Dates: start: 20100104, end: 20100104

REACTIONS (7)
  - LETHARGY [None]
  - BACK PAIN [None]
  - HEADACHE [None]
  - HYPERSENSITIVITY [None]
  - RENAL PAIN [None]
  - PYREXIA [None]
  - RASH GENERALISED [None]
